FAERS Safety Report 12202854 (Version 2)
Quarter: 2016Q2

REPORT INFORMATION
  Report Type: Spontaneous
  Country: GB (occurrence: GB)
  Receive Date: 20160322
  Receipt Date: 20160505
  Transmission Date: 20160815
  Serious: Yes (Other)
  Sender: FDA-Public Use
  Company Number: GB-HQ SPECIALTY-GB-2016INT000108

PATIENT
  Age: 47 Year
  Sex: Male

DRUGS (10)
  1. METHOTREXATE SODIUM. [Suspect]
     Active Substance: METHOTREXATE SODIUM
     Indication: DERMATITIS ATOPIC
     Dosage: 2.1429 MG (15 MG, 1 IN 1 W)
  2. RITUXIMAB [Suspect]
     Active Substance: RITUXIMAB
     Dosage: CYCLIC (1 G, 1 IN 2 W)
     Dates: start: 201305
  3. FUMARIC ACID [Suspect]
     Active Substance: FUMARIC ACID
     Indication: DERMATITIS ATOPIC
     Dosage: 60 MG, 1 D
  4. CICLOSPORIN [Suspect]
     Active Substance: CYCLOSPORINE
     Indication: DERMATITIS ATOPIC
     Dosage: 4 MG/KG, 1 D
  5. AZATHIOPRINE. [Suspect]
     Active Substance: AZATHIOPRINE
     Indication: DERMATITIS ATOPIC
     Dosage: 2 MG/KG, 1 D
  6. PREDNISOLONE. [Suspect]
     Active Substance: PREDNISOLONE
     Indication: DERMATITIS ATOPIC
     Dosage: 20-25 MG (1 D)
  7. PREDNISOLONE. [Suspect]
     Active Substance: PREDNISOLONE
     Dosage: 5 MG, 1 D
  8. PREDNISOLONE. [Suspect]
     Active Substance: PREDNISOLONE
     Dosage: 25 MG, 1 D
  9. RITUXIMAB [Suspect]
     Active Substance: RITUXIMAB
     Indication: DERMATITIS ATOPIC
     Dosage: 375 MG/M2, 1 W
     Dates: start: 201208, end: 201305
  10. MYCOPHENOLATE MOFETIL. [Suspect]
     Active Substance: MYCOPHENOLATE MOFETIL
     Indication: DERMATITIS ATOPIC
     Dosage: 3 G, 1 D

REACTIONS (3)
  - Drug ineffective [Unknown]
  - Cushingoid [Unknown]
  - Skin infection [Unknown]
